FAERS Safety Report 23509861 (Version 2)
Quarter: 2024Q1

REPORT INFORMATION
  Report Type: Spontaneous
  Country: US (occurrence: US)
  Receive Date: 20240211
  Receipt Date: 20240226
  Transmission Date: 20240410
  Serious: Yes (Other)
  Sender: FDA-Public Use
  Company Number: US-AUROBINDO-AUR-APL-2024-005394

PATIENT
  Age: 75 Year
  Sex: Male
  Weight: 63 kg

DRUGS (1)
  1. PRASUGREL [Suspect]
     Active Substance: PRASUGREL
     Indication: Iliac artery occlusion
     Dosage: UNK
     Route: 065

REACTIONS (2)
  - Therapeutic product effect prolonged [Not Recovered/Not Resolved]
  - Adverse drug reaction [Unknown]
